FAERS Safety Report 5474995-1 (Version None)
Quarter: 2007Q4

REPORT INFORMATION
  Report Type: 
  Country: None (occurrence: None)
  Receive Date: 20071002
  Receipt Date: 20070919
  Transmission Date: 20080405
  Serious: Yes (Other)
  Sender: FDA-Public Use
  Company Number: GB-ELI_LILLY_AND_COMPANY-GB200709004078

PATIENT
  Age: 38 Year
  Sex: Female

DRUGS (2)
  1. FLUOXETINE [Suspect]
     Dosage: 20 MG, UNK
     Route: 048
     Dates: start: 20070704
  2. NEOCLARITYN [Concomitant]
     Dosage: 5 MG, UNK
     Route: 048
     Dates: start: 20070809

REACTIONS (3)
  - ABNORMAL DREAMS [None]
  - AGITATION [None]
  - SOMNAMBULISM [None]
